FAERS Safety Report 24253599 (Version 3)
Quarter: 2024Q4

REPORT INFORMATION
  Report Type: Spontaneous
  Country: US (occurrence: US)
  Receive Date: 20240827
  Receipt Date: 20241011
  Transmission Date: 20250114
  Serious: No
  Sender: BRISTOL MYERS SQUIBB
  Company Number: US-BRISTOL-MYERS SQUIBB COMPANY-2024-135202

PATIENT
  Age: 59 Year
  Sex: Female

DRUGS (1)
  1. POMALYST [Suspect]
     Active Substance: POMALIDOMIDE
     Indication: Plasma cell myeloma
     Dosage: FREQUENCY: 1 CAP DAILY FOR 21 DAYS
     Route: 048

REACTIONS (4)
  - White blood cell count decreased [Unknown]
  - Plasma cells decreased [Unknown]
  - Abdominal discomfort [Unknown]
  - Viral infection [Unknown]
